FAERS Safety Report 8862859 (Version 2)
Quarter: 2012Q4

REPORT INFORMATION
  Report Type: 
  Country: RS (occurrence: RS)
  Receive Date: 20121026
  Receipt Date: 20121217
  Transmission Date: 20130627
  Serious: Yes (Other)
  Sender: FDA-Public Use
  Company Number: RS-GLAXOSMITHKLINE-B0840262A

PATIENT
  Age: 60 Year
  Sex: Male

DRUGS (1)
  1. SERETIDE DISKUS [Suspect]
     Indication: PRODUCT USED FOR UNKNOWN INDICATION
     Route: 055

REACTIONS (3)
  - Asphyxia [Unknown]
  - Drug ineffective [Unknown]
  - Product quality issue [Unknown]
